FAERS Safety Report 4942916-3 (Version None)
Quarter: 2006Q1

REPORT INFORMATION
  Report Type: 
  Country: None (occurrence: None)
  Receive Date: 20060309
  Receipt Date: 20060222
  Transmission Date: 20060701
  Serious: Yes (Hospitalization)
  Sender: FDA-Public Use
  Company Number: 2006-CZ-00733

PATIENT
  Age: 88 Year
  Sex: Female

DRUGS (8)
  1. CITALOPRAM 10 MG FILM-COATED TABLETS (CITALOPRAM) [Suspect]
     Indication: DEPRESSION
     Dosage: 10 MG 1 IN 1 D ORAL
     Route: 048
     Dates: start: 20051219, end: 20060126
  2. BENDROFLUAZIDE 2.5 MG TABLETS (BENDROFLUMETHIAZIDE) [Suspect]
     Indication: HYPERTENSION
     Dosage: 2.5 MG 1 IN 1 D ORAL
     Route: 048
     Dates: start: 20060113, end: 20060126
  3. PLANTAGO OVATA [Concomitant]
  4. ALVERINE CITRATE [Concomitant]
  5. METOCLOPRAMIDE [Concomitant]
  6. CYANCOBALAMIN [Concomitant]
  7. SALBUTAMOL [Concomitant]
  8. HYPROMELLOSE [Concomitant]

REACTIONS (2)
  - HYPOKALAEMIA [None]
  - HYPONATRAEMIA [None]
